FAERS Safety Report 12168463 (Version 1)
Quarter: 2016Q1

REPORT INFORMATION
  Report Type: Spontaneous
  Country: US (occurrence: US)
  Receive Date: 20160310
  Receipt Date: 20160310
  Transmission Date: 20160526
  Serious: No
  Sender: FDA-Public Use
  Company Number: US-PFIZER INC-2015051967

PATIENT
  Age: 26 Year
  Sex: Female
  Weight: 127.89 kg

DRUGS (13)
  1. VENTOLIN HFA [Concomitant]
     Active Substance: ALBUTEROL SULFATE
     Indication: WHEEZING
     Dosage: UNK, AS NEEDED (INHALE 2 PUFFS EVERY 6 HOURS AS NEEDED)
     Route: 055
     Dates: start: 20140708
  2. AMBIEN [Concomitant]
     Active Substance: ZOLPIDEM TARTRATE
     Indication: SLEEP DISORDER
     Dosage: 10 MG, AS NEEDED (NIGHTLY AT BEDTIMES AS NEEDED)
     Route: 048
     Dates: start: 20150123
  3. LANTUS [Concomitant]
     Active Substance: INSULIN GLARGINE
     Dosage: 30 IU, 1X/DAY (NIGHTLY AT BEDTIME)
     Route: 058
     Dates: start: 20150130
  4. RAPAMUNE [Suspect]
     Active Substance: SIROLIMUS
     Indication: LYMPHANGIOLEIOMYOMATOSIS
     Dosage: UNK
     Dates: start: 201108
  5. RAPAMUNE [Suspect]
     Active Substance: SIROLIMUS
     Dosage: 2 MG, DAILY
     Route: 048
     Dates: start: 20140507
  6. PROGESTERONE. [Concomitant]
     Active Substance: PROGESTERONE
     Dosage: 200 MG, DAILY
     Route: 048
     Dates: start: 20141223, end: 20151223
  7. PROAIR HFA [Concomitant]
     Active Substance: ALBUTEROL SULFATE
     Indication: WHEEZING
     Dosage: UNK, AS NEEDED (INHALE 2 PUFFS EVERY 6 HOURS AS NEEDED )
     Route: 055
     Dates: start: 20140708
  8. GLUCOPHAGE [Concomitant]
     Active Substance: METFORMIN HYDROCHLORIDE
     Dosage: 1000 MG, 2X/DAY
     Route: 048
     Dates: start: 20150302
  9. LANTUS [Concomitant]
     Active Substance: INSULIN GLARGINE
     Dosage: 20 IU, 1X/DAY (NIGHTLY AT BEDTIME )
     Route: 058
     Dates: start: 20141031
  10. TAB A VITE [Concomitant]
     Dosage: UNK
     Route: 048
  11. BACLOFEN. [Concomitant]
     Active Substance: BACLOFEN
     Dosage: UNK, AS NEEDED
     Route: 048
  12. SULFAMETHOXAZOLE AND TRIMETHOPRIM [Concomitant]
     Active Substance: SULFAMETHOXAZOLE\TRIMETHOPRIM
     Dosage: 1 DF, UNK (SULFAMETHOXAZOLE: 800MG, TRIMETHOPRIM: 160MG)/3 TIMES A WEEK
     Route: 048
     Dates: start: 20141120
  13. COZAAR [Concomitant]
     Active Substance: LOSARTAN POTASSIUM
     Dosage: 100 MG, DAILY
     Route: 048
     Dates: start: 20150130

REACTIONS (6)
  - Depression [Unknown]
  - Weight increased [Unknown]
  - Neck pain [Unknown]
  - Hypertension [Unknown]
  - Road traffic accident [Unknown]
  - Bone pain [Unknown]

NARRATIVE: CASE EVENT DATE: 20110915
